FAERS Safety Report 13031826 (Version 1)
Quarter: 2016Q4

REPORT INFORMATION
  Report Type: Spontaneous
  Country: US (occurrence: US)
  Receive Date: 20161215
  Receipt Date: 20161215
  Transmission Date: 20170207
  Serious: Yes (Death, Other)
  Sender: FDA-Public Use
  Company Number: US-PFIZER INC-2016574879

PATIENT
  Age: 53 Year
  Sex: Male
  Weight: 99.77 kg

DRUGS (2)
  1. CHANTIX [Suspect]
     Active Substance: VARENICLINE TARTRATE
     Indication: SMOKING CESSATION THERAPY
     Dosage: 0.5 MG, UNK
     Route: 048
     Dates: start: 201610
  2. CHANTIX [Suspect]
     Active Substance: VARENICLINE TARTRATE
     Dosage: 1 MG, 2X/DAY
     Route: 048

REACTIONS (7)
  - Headache [Unknown]
  - Swelling face [Unknown]
  - Dry mouth [Unknown]
  - Heart rate increased [Unknown]
  - Hypertension [Fatal]
  - Myocardial infarction [Unknown]
  - Nightmare [Unknown]
